FAERS Safety Report 9165516 (Version 1)
Quarter: 2013Q1

REPORT INFORMATION
  Report Type: Spontaneous
  Country: US (occurrence: None)
  Receive Date: 20130314
  Receipt Date: 20130314
  Transmission Date: 20140127
  Serious: Yes (Life-Threatening, Hospitalization)
  Sender: FDA-Public Use
  Company Number: None

PATIENT
  Sex: Male
  Weight: 84.19 kg

DRUGS (6)
  1. LENALIDOMIDE [Suspect]
     Indication: ACUTE MYELOID LEUKAEMIA
     Route: 048
     Dates: start: 20130131, end: 20130215
  2. LISINOPRIL [Concomitant]
  3. PREDNISONE [Concomitant]
  4. ALBUTEROL INHALER [Concomitant]
  5. FLONASE [Concomitant]
  6. DUONEBS [Concomitant]

REACTIONS (8)
  - Malignant neoplasm progression [None]
  - Pyrexia [None]
  - Chills [None]
  - Hypotension [None]
  - Diarrhoea [None]
  - Renal failure acute [None]
  - Clostridium difficile sepsis [None]
  - Acute myeloid leukaemia [None]
